FAERS Safety Report 9295046 (Version 1)
Quarter: 2013Q2

REPORT INFORMATION
  Report Type: Spontaneous
  Country: US (occurrence: None)
  Receive Date: 20130516
  Receipt Date: 20130516
  Transmission Date: 20140414
  Serious: Yes (Other)
  Sender: FDA-Public Use
  Company Number: None

PATIENT
  Age: 39 Year
  Sex: Female
  Weight: 61.24 kg

DRUGS (2)
  1. AMOXICILLIN/CLAVUL ANIC ACID [Suspect]
     Indication: SINUSITIS
     Dosage: 1 TABLET EVERY 12 HOURS
     Route: 048
     Dates: start: 20130503, end: 20130503
  2. AMOXICILLIN/CLAVUL ANIC ACID [Suspect]
     Indication: BACTERIAL INFECTION
     Dosage: 1 TABLET EVERY 12 HOURS
     Route: 048
     Dates: start: 20130503, end: 20130503

REACTIONS (5)
  - Headache [None]
  - Dizziness [None]
  - Feeling abnormal [None]
  - Nausea [None]
  - Vomiting [None]
